FAERS Safety Report 10314781 (Version 2)
Quarter: 2014Q3

REPORT INFORMATION
  Report Type: Spontaneous
  Country: US (occurrence: US)
  Receive Date: 20140718
  Receipt Date: 20140718
  Transmission Date: 20150326
  Serious: Yes (Hospitalization, Other)
  Sender: FDA-Public Use
  Company Number: US-009507513-2009SP023505

PATIENT
  Sex: Female
  Weight: 129.28 kg

DRUGS (3)
  1. EFFEXOR XR [Concomitant]
     Active Substance: VENLAFAXINE HYDROCHLORIDE
     Indication: POSTPARTUM DEPRESSION
     Dosage: 75 MG, QD
     Dates: start: 20080801, end: 20080912
  2. NUVARING [Suspect]
     Active Substance: ETHINYL ESTRADIOL\ETONOGESTREL
     Indication: CONTRACEPTION
     Dosage: 1 DF, UNKNOWN
     Dates: start: 20080718, end: 20080912
  3. MIRALAX [Concomitant]
     Active Substance: POLYETHYLENE GLYCOL 3350
     Indication: IRRITABLE BOWEL SYNDROME
     Dosage: 17 G, PRN
     Dates: start: 200804

REACTIONS (24)
  - Cardiomegaly [Unknown]
  - Transient ischaemic attack [Unknown]
  - Pulmonary valve incompetence [Unknown]
  - Peripheral swelling [Unknown]
  - Cerebrovascular accident [Unknown]
  - Gastrooesophageal reflux disease [Unknown]
  - Pain in extremity [Unknown]
  - Depression [Unknown]
  - Vision blurred [Recovered/Resolved]
  - Haematoma [Unknown]
  - Infusion site extravasation [Unknown]
  - Aortic valve sclerosis [Unknown]
  - Dyslipidaemia [Unknown]
  - Microangiopathy [Unknown]
  - Convulsion [Recovered/Resolved]
  - Swelling face [Recovered/Resolved]
  - Chest pain [Unknown]
  - Musculoskeletal chest pain [Unknown]
  - Rash [Recovered/Resolved]
  - Dyspnoea [Unknown]
  - Hypersensitivity [Unknown]
  - Mental disorder [Unknown]
  - Sleep apnoea syndrome [Unknown]
  - Thyroid disorder [Unknown]

NARRATIVE: CASE EVENT DATE: 20080718
